FAERS Safety Report 8416095-4 (Version None)
Quarter: 2012Q2

REPORT INFORMATION
  Report Type: 
  Country: None (occurrence: None)
  Receive Date: 20120530
  Receipt Date: 20120518
  Transmission Date: 20120825
  Serious: Yes (Other)
  Sender: FDA-Public Use
  Company Number: 1231456

PATIENT
  Age: 48 Year
  Sex: Female
  Weight: 31.7518 kg

DRUGS (11)
  1. RANITIDINE [Suspect]
     Indication: PRODUCT USED FOR UNKNOWN INDICATION
     Dosage: 50 MG MILLIGRAM(S), INTRAVENOUS
     Route: 042
  2. (BIOTENE) [Concomitant]
  3. GRANISETRON [Suspect]
     Indication: PRODUCT USED FOR UNKNOWN INDICATION
     Dosage: 1 MG MILLIGRAM(S) (1 DAY), ORAL
     Route: 048
  4. (CHLORPHENAMINE) [Suspect]
     Indication: PRODUCT USED FOR UNKNOWN INDICATION
     Dosage: 10 MG MILLIGRAM(S), INTRAVENOUS
     Route: 042
  5. NEULASTA [Suspect]
     Indication: CHEMOTHERAPY
     Dosage: 6 MG MILLIGRAM(S), SUBCUTANEOUS
     Route: 058
  6. DEXAMETHASONE [Suspect]
     Indication: PRODUCT USED FOR UNKNOWN INDICATION
     Dosage: 20 MG MILLIGRAM(S), INTRAVENOUS
     Route: 042
     Dates: start: 20110705
  7. PACLITAXEL [Suspect]
     Indication: BREAST CANCER
     Dosage: 315 MG MILLIGRAM(S) (2 WEEK), INTRAVENOUS
     Route: 042
     Dates: end: 20110705
  8. PACLITAXEL [Suspect]
     Indication: BREAST CANCER
     Dosage: 315 MG MILLIGRAM(S) (2 WEEK), INTRAVENOUS
     Route: 042
     Dates: start: 20110524, end: 20110705
  9. DOCUSATE [Concomitant]
  10. (DOMPERIDONE) [Suspect]
     Indication: PRODUCT USED FOR UNKNOWN INDICATION
     Dosage: 20 MG MILLIGRAM(S), 1 DAY, ORAL, 20 MG, AS NEEDED, ORAL
     Route: 048
  11. DEXAMETHASONE [Suspect]
     Indication: PRODUCT USED FOR UNKNOWN INDICATION
     Dosage: 4 MG MILLIGRAM(S) (1 DAY), ORAL
     Route: 048

REACTIONS (5)
  - CHEST DISCOMFORT [None]
  - CHEST PAIN [None]
  - FATIGUE [None]
  - HYPOPNOEA [None]
  - DYSPNOEA [None]
